FAERS Safety Report 19960663 (Version 1)
Quarter: 2021Q4

REPORT INFORMATION
  Report Type: Spontaneous
  Country: US (occurrence: US)
  Receive Date: 20211016
  Receipt Date: 20211016
  Transmission Date: 20220303
  Serious: No
  Sender: FDA-Public Use
  Company Number: US-TORRENT-00011278

PATIENT
  Age: 20 Year
  Sex: Male

DRUGS (1)
  1. PANTOPRAZOLE SODIUM [Suspect]
     Active Substance: PANTOPRAZOLE SODIUM
     Indication: Gastrooesophageal reflux disease
     Dosage: INITIALLY IN MORNING AFTER IN EVENING
     Dates: start: 2018

REACTIONS (2)
  - Insomnia [Unknown]
  - Drug ineffective [Unknown]
